FAERS Safety Report 25358819 (Version 1)
Quarter: 2025Q2

REPORT INFORMATION
  Report Type: Report from Study
  Country: GB (occurrence: GB)
  Receive Date: 20250526
  Receipt Date: 20250526
  Transmission Date: 20250717
  Serious: Yes (Other)
  Sender: SAMSUNG BIOEPIS
  Company Number: GB-SAMSUNG BIOEPIS-SB-2025-17797

PATIENT
  Sex: Female

DRUGS (2)
  1. PYZCHIVA [Suspect]
     Active Substance: USTEKINUMAB-TTWE
     Indication: Crohn^s disease
     Route: 058
  2. PYZCHIVA [Suspect]
     Active Substance: USTEKINUMAB-TTWE
     Dates: start: 202407

REACTIONS (2)
  - Crohn^s disease [Unknown]
  - Therapeutic response shortened [Unknown]
